FAERS Safety Report 16172939 (Version 5)
Quarter: 2022Q1

REPORT INFORMATION
  Report Type: Spontaneous
  Country: US (occurrence: US)
  Receive Date: 20190409
  Receipt Date: 20220204
  Transmission Date: 20220423
  Serious: Yes (Hospitalization)
  Sender: FDA-Public Use
  Company Number: US-PFIZER INC-2019140669

PATIENT
  Age: 57 Year
  Sex: Female

DRUGS (4)
  1. XELJANZ XR [Suspect]
     Active Substance: TOFACITINIB CITRATE
     Dosage: 11 MG
     Dates: start: 20190801
  2. XELJANZ XR [Suspect]
     Active Substance: TOFACITINIB CITRATE
     Dosage: 11 MG, 1X/DAY
     Route: 048
     Dates: start: 20190907
  3. XELJANZ XR [Suspect]
     Active Substance: TOFACITINIB CITRATE
     Dosage: 0.5 DF, DAILY (1/2 TABLET) FOR THE NEXT 7 DAYS
  4. XELJANZ XR [Suspect]
     Active Substance: TOFACITINIB CITRATE
     Dosage: 11 MG
     Dates: start: 20200905

REACTIONS (7)
  - Ketoacidosis [Unknown]
  - COVID-19 [Unknown]
  - Product dose omission issue [Unknown]
  - Product prescribing error [Unknown]
  - Headache [Unknown]
  - Pain [Unknown]
  - Swelling [Unknown]

NARRATIVE: CASE EVENT DATE: 20210101
